FAERS Safety Report 25632961 (Version 1)
Quarter: 2025Q3

REPORT INFORMATION
  Report Type: Spontaneous
  Country: US (occurrence: US)
  Receive Date: 20250801
  Receipt Date: 20250801
  Transmission Date: 20251021
  Serious: Yes (Other)
  Sender: PFIZER
  Company Number: US-PFIZER INC-202500154151

PATIENT
  Age: 31 Year
  Sex: Male

DRUGS (2)
  1. NURTEC ODT [Suspect]
     Active Substance: RIMEGEPANT SULFATE
  2. AIMOVIG [Concomitant]
     Active Substance: ERENUMAB-AOOE
     Dates: start: 202212, end: 20230601

REACTIONS (1)
  - Hypertension [Recovered/Resolved]
